FAERS Safety Report 22634950 (Version 1)
Quarter: 2023Q2

REPORT INFORMATION
  Report Type: Spontaneous
  Country: US (occurrence: None)
  Receive Date: 20230622
  Receipt Date: 20230622
  Transmission Date: 20230722
  Serious: Yes (Hospitalization)
  Sender: FDA-Public Use
  Company Number: None

PATIENT
  Age: 52 Year
  Sex: Male
  Weight: 60.3 kg

DRUGS (11)
  1. CYCLOSPORINE [Suspect]
     Active Substance: CYCLOSPORINE
     Indication: Heart transplant
     Dosage: FREQUENCY : TWICE A DAY;?
     Route: 048
  2. SIROLIMUS [Suspect]
     Active Substance: SIROLIMUS
     Indication: Heart transplant
     Dosage: FREQUENCY : DAILY;?
     Route: 048
  3. EZETIMIBE [Concomitant]
     Active Substance: EZETIMIBE
  4. FUROSEMIDE [Concomitant]
     Active Substance: FUROSEMIDE
  5. LOSARTAN [Concomitant]
     Active Substance: LOSARTAN
  6. magnesium gluconate 500mg [Concomitant]
  7. metoprolol ER succinate 50mg [Concomitant]
  8. POTASSIUM CHLORIDE [Concomitant]
     Active Substance: POTASSIUM CHLORIDE
  9. PREDNISONE [Concomitant]
     Active Substance: PREDNISONE
  10. ROSUVASTATIN [Concomitant]
     Active Substance: ROSUVASTATIN
  11. SPIRONOLACTONE [Concomitant]
     Active Substance: SPIRONOLACTONE
     Dates: start: 20220718

REACTIONS (4)
  - Arrhythmia [None]
  - Loss of consciousness [None]
  - Jaw fracture [None]
  - Accident [None]

NARRATIVE: CASE EVENT DATE: 20230324
